FAERS Safety Report 9946733 (Version 1)
Quarter: 2014Q1

REPORT INFORMATION
  Report Type: Spontaneous
  Country: US (occurrence: US)
  Receive Date: 20140303
  Receipt Date: 20140303
  Transmission Date: 20141002
  Serious: Yes (Death, Hospitalization)
  Sender: FDA-Public Use
  Company Number: US-TEVA-466035USA

PATIENT
  Age: 69 Year
  Sex: Female
  Weight: 46.9 kg

DRUGS (10)
  1. ACTIQ [Suspect]
     Indication: PRODUCT USED FOR UNKNOWN INDICATION
  2. CLONAZEPAM [Concomitant]
     Dosage: 1-2 TABS Q HS
     Route: 048
  3. SENNA-S [Concomitant]
     Dosage: 4 DOSAGE FORMS DAILY;
     Route: 048
  4. FENTANYL [Concomitant]
     Dosage: 4 PATCHES OF 200MG
     Route: 061
  5. FLUOXETINE [Concomitant]
     Dosage: 20 MILLIGRAM DAILY;
     Route: 048
  6. IBUPROFEN [Concomitant]
     Dosage: 2400 MILLIGRAM DAILY;
     Route: 048
  7. MEGACE [Concomitant]
     Dosage: 800 MILLIGRAM DAILY;
     Route: 048
  8. METOPROLOL [Concomitant]
     Dosage: 25 MILLIGRAM DAILY;
     Route: 048
  9. OLANZAPINE [Concomitant]
     Dosage: 5 MILLIGRAM DAILY;
     Route: 048
  10. WARFARIN [Concomitant]
     Dosage: 5 MILLIGRAM DAILY;
     Route: 048

REACTIONS (2)
  - Death [Fatal]
  - Hospice care [Not Recovered/Not Resolved]
